FAERS Safety Report 5122950-3 (Version None)
Quarter: 2006Q4

REPORT INFORMATION
  Report Type: 
  Country: None (occurrence: None)
  Receive Date: 20061005
  Receipt Date: 20060920
  Transmission Date: 20070319
  Serious: No
  Sender: FDA-Public Use
  Company Number: SPVI-2006-00867

PATIENT
  Age: 39 Year
  Sex: Male
  Weight: 90.7 kg

DRUGS (3)
  1. ADDERALL XR(DEXTROAMPHETAMINE SULFATE, DEXTROAMPHETAMINE SACCHARATE, A [Suspect]
     Indication: ATTENTION DEFICIT/HYPERACTIVITY DISORDER
     Dosage: 40 MG DAILY; 10  MG DAILY; 20 MG DAILY; 15 MG DAILY
     Dates: start: 20060720, end: 20060731
  2. ADDERALL XR(DEXTROAMPHETAMINE SULFATE, DEXTROAMPHETAMINE SACCHARATE, A [Suspect]
     Indication: ATTENTION DEFICIT/HYPERACTIVITY DISORDER
     Dosage: 40 MG DAILY; 10  MG DAILY; 20 MG DAILY; 15 MG DAILY
     Dates: start: 20060701
  3. WELLBUTRIN [Concomitant]

REACTIONS (13)
  - ANOREXIA [None]
  - ANXIETY [None]
  - CHEST PAIN [None]
  - DISTURBANCE IN ATTENTION [None]
  - DIZZINESS [None]
  - DRUG INEFFECTIVE [None]
  - DYSPNOEA [None]
  - FEAR [None]
  - HYPOAESTHESIA [None]
  - LOSS OF CONSCIOUSNESS [None]
  - MOVEMENT DISORDER [None]
  - PRESCRIBED OVERDOSE [None]
  - TREMOR [None]
